FAERS Safety Report 5773870-2 (Version None)
Quarter: 2008Q2

REPORT INFORMATION
  Report Type: 
  Country: None (occurrence: None)
  Receive Date: 20080616
  Receipt Date: 20080611
  Transmission Date: 20081010
  Serious: Yes (Disabling)
  Sender: FDA-Public Use
  Company Number: A0714722A

PATIENT
  Age: 48 Year
  Sex: Male

DRUGS (2)
  1. WELLBUTRIN XL [Suspect]
     Indication: DRUG USE FOR UNKNOWN INDICATION
     Dosage: 300MG PER DAY
     Route: 048
     Dates: end: 20080414
  2. UNKNOWN [Concomitant]

REACTIONS (5)
  - BLINDNESS UNILATERAL [None]
  - DRY EYE [None]
  - EYE HAEMORRHAGE [None]
  - HYPERTENSION [None]
  - OPTIC ISCHAEMIC NEUROPATHY [None]
